FAERS Safety Report 8039273-5 (Version None)
Quarter: 2012Q1

REPORT INFORMATION
  Report Type: 
  Country: None (occurrence: None)
  Receive Date: 20120111
  Receipt Date: 20111215
  Transmission Date: 20120608
  Serious: No
  Sender: FDA-Public Use
  Company Number: US-AMGEN-USASP2011062825

PATIENT
  Age: 65 Year
  Sex: Female
  Weight: 64.9 kg

DRUGS (9)
  1. ENBREL [Suspect]
     Indication: RHEUMATOID ARTHRITIS
     Dosage: 50 MG, QWK
     Route: 058
     Dates: start: 20111118, end: 20111125
  2. TYLENOL (CAPLET) [Concomitant]
  3. FOSAMAX [Concomitant]
  4. PREDNISONE TAB [Concomitant]
     Dosage: 20 MG DAILY FOR 1WEEK, THEN 15 MG DAILY FOR 1 WEEK, BACK TO 10 MG DAILY
  5. GLYBURIDE [Concomitant]
  6. METHOTREXATE [Concomitant]
     Dosage: 20 MG, QWK
  7. TENORETIC 100 [Concomitant]
  8. METFORMIN HCL [Concomitant]
  9. NORVASC [Concomitant]

REACTIONS (6)
  - DYSPNOEA [None]
  - ARTHRALGIA [None]
  - SKIN DISCOLOURATION [None]
  - MUSCULOSKELETAL STIFFNESS [None]
  - INJECTION SITE HAEMATOMA [None]
  - INJECTION SITE PAIN [None]
